FAERS Safety Report 9882872 (Version 3)
Quarter: 2016Q1

REPORT INFORMATION
  Report Type: Other
  Country: US (occurrence: US)
  Receive Date: 20140207
  Receipt Date: 20160229
  Transmission Date: 20160526
  Serious: No
  Sender: FDA-Public Use
  Company Number: US-ACORDA-ACO_38993_2013

PATIENT
  Sex: Female

DRUGS (1)
  1. AMPYRA [Suspect]
     Active Substance: DALFAMPRIDINE
     Indication: PRODUCT USED FOR UNKNOWN INDICATION
     Dosage: 10 MG, UNK
     Route: 065
     Dates: start: 20120524

REACTIONS (7)
  - Blood cholesterol increased [Unknown]
  - Liver function test increased [Unknown]
  - Depression [Unknown]
  - Asthenia [Unknown]
  - Headache [Unknown]
  - Peripheral coldness [None]
  - Dysuria [Unknown]
